FAERS Safety Report 8067033-8 (Version None)
Quarter: 2012Q1

REPORT INFORMATION
  Report Type: 
  Country: None (occurrence: None)
  Receive Date: 20120124
  Receipt Date: 20120113
  Transmission Date: 20120608
  Serious: Yes (Other)
  Sender: FDA-Public Use
  Company Number: BR-JNJFOC-20120107573

PATIENT
  Age: 76 Year
  Sex: Female
  Weight: 90 kg

DRUGS (2)
  1. ACETAMINOPHEN [Suspect]
     Indication: PRODUCT USED FOR UNKNOWN INDICATION
     Route: 065
  2. ACETAMINOPHEN [Suspect]
     Route: 065

REACTIONS (3)
  - SWELLING FACE [None]
  - LARYNGEAL OEDEMA [None]
  - HYPERSENSITIVITY [None]
